FAERS Safety Report 11281870 (Version 1)
Quarter: 2015Q3

REPORT INFORMATION
  Report Type: Spontaneous
  Country: US (occurrence: US)
  Receive Date: 20150717
  Receipt Date: 20150717
  Transmission Date: 20151125
  Serious: Yes (Other)
  Sender: FDA-Public Use
  Company Number: US-GILEAD-2015-0163042

PATIENT
  Sex: Female

DRUGS (1)
  1. HARVONI [Suspect]
     Active Substance: LEDIPASVIR\SOFOSBUVIR
     Indication: PRODUCT USED FOR UNKNOWN INDICATION
     Dosage: UNK
     Route: 065
     Dates: start: 201503, end: 201505

REACTIONS (5)
  - Tendon disorder [Unknown]
  - Ammonia increased [Unknown]
  - Fluid retention [Unknown]
  - Liver function test abnormal [Unknown]
  - Paranoia [Unknown]

NARRATIVE: CASE EVENT DATE: 2015
